APPROVED DRUG PRODUCT: CILOSTAZOL
Active Ingredient: CILOSTAZOL
Strength: 100MG
Dosage Form/Route: TABLET;ORAL
Application: A077020 | Product #002
Applicant: IVAX PHARMACEUTICALS INC SUB TEVA PHARMACEUTICALS USA
Approved: Mar 1, 2005 | RLD: No | RS: No | Type: DISCN